FAERS Safety Report 23232237 (Version 1)
Quarter: 2023Q4

REPORT INFORMATION
  Report Type: Spontaneous
  Country: US (occurrence: US)
  Receive Date: 20231127
  Receipt Date: 20231127
  Transmission Date: 20240109
  Serious: No
  Sender: FDA-Public Use
  Company Number: US-BAUSCHBL-2023BNL012023

PATIENT
  Age: 56 Year
  Sex: Male

DRUGS (1)
  1. OPCON-A [Suspect]
     Active Substance: NAPHAZOLINE HYDROCHLORIDE\PHENIRAMINE MALEATE
     Indication: Product used for unknown indication
     Dosage: ONCE OR TWICE
     Route: 065
     Dates: start: 20231113, end: 202311

REACTIONS (4)
  - Ocular hyperaemia [Recovering/Resolving]
  - Periorbital swelling [Recovering/Resolving]
  - Eye discharge [Recovering/Resolving]
  - Purulent discharge [Recovering/Resolving]

NARRATIVE: CASE EVENT DATE: 20231114
